FAERS Safety Report 7864000-1 (Version None)
Quarter: 2011Q4

REPORT INFORMATION
  Report Type: 
  Country: None (occurrence: None)
  Receive Date: 20111028
  Receipt Date: 20111024
  Transmission Date: 20120403
  Serious: No
  Sender: FDA-Public Use
  Company Number: US-BIOGENIDEC-2011BI040536

PATIENT
  Sex: Female

DRUGS (3)
  1. AVONEX [Concomitant]
     Indication: MULTIPLE SCLEROSIS
     Route: 030
  2. TYSABRI [Suspect]
     Indication: MULTIPLE SCLEROSIS
     Route: 042
     Dates: start: 20101212
  3. AVONEX [Concomitant]
     Route: 030
     Dates: start: 20050329

REACTIONS (3)
  - FATIGUE [None]
  - APHASIA [None]
  - STRESS [None]
